FAERS Safety Report 14331672 (Version 2)
Quarter: 2018Q1

REPORT INFORMATION
  Report Type: Report from Study
  Country: DE (occurrence: DE)
  Receive Date: 20171228
  Receipt Date: 20180124
  Transmission Date: 20180509
  Serious: Yes (Hospitalization)
  Sender: FDA-Public Use
  Company Number: DE-JNJFOC-20171228470

PATIENT
  Age: 58 Year
  Sex: Male
  Weight: 85 kg

DRUGS (5)
  1. HCT [Concomitant]
     Active Substance: HYDROCHLOROTHIAZIDE
     Route: 048
  2. RIVAROXABAN [Suspect]
     Active Substance: RIVAROXABAN
     Indication: PRODUCT USED FOR UNKNOWN INDICATION
     Route: 048
  3. LEVETIRACETAM. [Concomitant]
     Active Substance: LEVETIRACETAM
     Route: 048
  4. RAMIPRIL. [Concomitant]
     Active Substance: RAMIPRIL
     Route: 048
  5. BISOPROLOL [Concomitant]
     Active Substance: BISOPROLOL
     Route: 048

REACTIONS (6)
  - Neurologic neglect syndrome [Unknown]
  - Cerebral haemorrhage [Unknown]
  - Dysarthria [Unknown]
  - Apraxia [Unknown]
  - Hemiplegia [Unknown]
  - Aphasia [Unknown]

NARRATIVE: CASE EVENT DATE: 20170711
